FAERS Safety Report 5611002-1 (Version None)
Quarter: 2008Q1

REPORT INFORMATION
  Report Type: 
  Country: None (occurrence: None)
  Receive Date: 20080201
  Receipt Date: 20080123
  Transmission Date: 20080703
  Serious: Yes (Other)
  Sender: FDA-Public Use
  Company Number: A0706916A

PATIENT
  Age: 33 Year
  Sex: Female

DRUGS (2)
  1. BUPROPION HCL [Suspect]
     Indication: FIBROMYALGIA
     Dosage: 150MG PER DAY
     Route: 048
  2. CELEBREX [Concomitant]

REACTIONS (2)
  - ABORTION OF ECTOPIC PREGNANCY [None]
  - DRUG EXPOSURE DURING PREGNANCY [None]
